FAERS Safety Report 24183795 (Version 1)
Quarter: 2024Q3

REPORT INFORMATION
  Report Type: Spontaneous
  Country: CN (occurrence: CN)
  Receive Date: 20240807
  Receipt Date: 20240807
  Transmission Date: 20241017
  Serious: Yes (Other)
  Sender: PFIZER
  Company Number: CN-PFIZER INC-PV202400101288

PATIENT
  Age: 56 Year
  Sex: Male
  Weight: 45 kg

DRUGS (4)
  1. TYGACIL [Suspect]
     Active Substance: TIGECYCLINE
     Indication: Chronic respiratory failure
     Dosage: 50 MG, 2X/DAY
     Route: 041
     Dates: start: 20240717, end: 20240725
  2. TYGACIL [Suspect]
     Active Substance: TIGECYCLINE
     Indication: Respiratory failure
  3. TYGACIL [Suspect]
     Active Substance: TIGECYCLINE
     Indication: Pneumonia
  4. SODIUM CHLORIDE [Concomitant]
     Active Substance: SODIUM CHLORIDE
     Indication: Vehicle solution use
     Dosage: 100 ML, 2X/DAY
     Route: 041
     Dates: start: 20240717, end: 20240725

REACTIONS (3)
  - Myelosuppression [Recovering/Resolving]
  - Hepatic function abnormal [Recovering/Resolving]
  - White blood cell count decreased [Recovering/Resolving]

NARRATIVE: CASE EVENT DATE: 20240724
